FAERS Safety Report 6024518-3 (Version None)
Quarter: 2008Q4

REPORT INFORMATION
  Report Type: 
  Country: None (occurrence: None)
  Receive Date: 20081231
  Receipt Date: 20081010
  Transmission Date: 20090506
  Serious: No
  Sender: FDA-Public Use
  Company Number: US-BRISTOL-MYERS SQUIBB COMPANY-14349500

PATIENT
  Age: 67 Year
  Sex: Female

DRUGS (7)
  1. ORENCIA [Suspect]
     Indication: RHEUMATOID ARTHRITIS
     Dosage: 1000MG:15FEB07-23JUL08/4WK UNIT:MG/KG 02SEP08:REDUCD TO 750MG/4WK 17SEP08:750MG RECHALLANGED.
     Route: 042
     Dates: start: 20080820
  2. CELEBREX [Concomitant]
     Dates: start: 20070810
  3. FOLIC ACID [Concomitant]
     Dates: start: 20070810
  4. ASPIRIN [Concomitant]
     Dates: start: 20070810
  5. METHOTREXATE [Concomitant]
     Dates: start: 20070810
  6. FOSAMAX [Concomitant]
     Dates: start: 20070810
  7. LIPITOR [Concomitant]
     Dates: start: 20070810

REACTIONS (1)
  - DRUG EFFECT DECREASED [None]
